FAERS Safety Report 24340601 (Version 2)
Quarter: 2024Q4

REPORT INFORMATION
  Report Type: Spontaneous
  Country: SI (occurrence: SI)
  Receive Date: 20240919
  Receipt Date: 20241005
  Transmission Date: 20250114
  Serious: Yes (Life-Threatening, Hospitalization)
  Sender: TEVA
  Company Number: SI-TEVA-VS-3242517

PATIENT
  Sex: Female

DRUGS (16)
  1. RISPERIDONE [Suspect]
     Active Substance: RISPERIDONE
     Indication: Psychotic disorder
     Route: 065
     Dates: start: 201903
  2. RISPERIDONE [Suspect]
     Active Substance: RISPERIDONE
     Indication: Psychotic disorder
     Route: 065
     Dates: start: 202207
  3. RISPERIDONE [Suspect]
     Active Substance: RISPERIDONE
     Indication: Psychotic disorder
     Route: 065
     Dates: start: 2022, end: 2022
  4. RISPERIDONE [Suspect]
     Active Substance: RISPERIDONE
     Indication: Psychotic disorder
     Route: 065
     Dates: start: 2022
  5. RISPERIDONE [Suspect]
     Active Substance: RISPERIDONE
     Indication: Psychotic disorder
     Route: 065
     Dates: start: 201903
  6. LORAZEPAM [Concomitant]
     Active Substance: LORAZEPAM
     Indication: Insomnia
     Dosage: TIME INTERVAL: 0.33333333 DAYS
     Route: 065
     Dates: start: 2022
  7. LORAZEPAM [Concomitant]
     Active Substance: LORAZEPAM
     Indication: Insomnia
     Route: 065
     Dates: start: 2022
  8. OLANZAPINE [Suspect]
     Active Substance: OLANZAPINE
     Indication: Psychotic disorder
     Route: 065
     Dates: start: 2022
  9. Amoxicillin; Clavulanic acid [Concomitant]
     Indication: Antibiotic therapy
     Route: 065
     Dates: start: 2022
  10. AZITHROMYCIN [Concomitant]
     Active Substance: AZITHROMYCIN
     Indication: Antibiotic therapy
     Route: 065
     Dates: start: 2022
  11. ARIPIPRAZOLE [Suspect]
     Active Substance: ARIPIPRAZOLE
     Indication: Psychotic disorder
     Route: 065
     Dates: start: 2022, end: 2022
  12. ARIPIPRAZOLE [Suspect]
     Active Substance: ARIPIPRAZOLE
     Indication: Psychotic disorder
     Route: 065
     Dates: start: 2022
  13. FLUPHENAZINE [Suspect]
     Active Substance: FLUPHENAZINE
     Indication: Psychotic disorder
     Dosage: DOSE REDUCED
     Route: 065
     Dates: start: 2022, end: 2022
  14. FLUPHENAZINE [Suspect]
     Active Substance: FLUPHENAZINE
     Indication: Psychotic disorder
     Route: 065
     Dates: start: 2022
  15. BIPERIDEN [Concomitant]
     Active Substance: BIPERIDEN
     Indication: Bradykinesia
     Route: 065
     Dates: start: 2022
  16. BREXPIPRAZOLE [Suspect]
     Active Substance: BREXPIPRAZOLE
     Indication: Psychotic disorder
     Route: 065
     Dates: start: 2022, end: 2022

REACTIONS (6)
  - Extrapyramidal disorder [Recovered/Resolved]
  - Neuroleptic malignant syndrome [Unknown]
  - Dysphonia [Unknown]
  - Dysphagia [Unknown]
  - Akathisia [Recovered/Resolved]
  - Treatment noncompliance [Unknown]

NARRATIVE: CASE EVENT DATE: 20220101
